FAERS Safety Report 16254284 (Version 6)
Quarter: 2020Q2

REPORT INFORMATION
  Report Type: Report from Study
  Country: US (occurrence: US)
  Receive Date: 20190430
  Receipt Date: 20200623
  Transmission Date: 20200713
  Serious: Yes (Hospitalization, Other)
  Sender: FDA-Public Use
  Company Number: PHEH2019US018150

PATIENT
  Age: 49 Year
  Sex: Female

DRUGS (2)
  1. GILENYA [Suspect]
     Active Substance: FINGOLIMOD HYDROCHLORIDE
     Indication: MULTIPLE SCLEROSIS
     Dosage: 0.5 MG, QD
     Route: 048
     Dates: start: 20180511
  2. GILENYA [Suspect]
     Active Substance: FINGOLIMOD HYDROCHLORIDE
     Dosage: 0.5 MG, QD
     Route: 048
     Dates: start: 201806

REACTIONS (14)
  - Drug ineffective [Unknown]
  - Product use in unapproved indication [Unknown]
  - Secondary progressive multiple sclerosis [Unknown]
  - Band sensation [Recovered/Resolved with Sequelae]
  - Multiple sclerosis relapse [Recovered/Resolved with Sequelae]
  - Miliaria [Unknown]
  - Biopsy lung [Unknown]
  - Memory impairment [Unknown]
  - Diarrhoea [Unknown]
  - Insomnia [Unknown]
  - Loss of control of legs [Recovered/Resolved with Sequelae]
  - Muscle spasticity [Unknown]
  - Hypoaesthesia [Recovered/Resolved with Sequelae]
  - Neuralgia [Unknown]

NARRATIVE: CASE EVENT DATE: 20200127
